FAERS Safety Report 12665782 (Version 1)
Quarter: 2016Q3

REPORT INFORMATION
  Report Type: Spontaneous
  Country: US (occurrence: US)
  Receive Date: 20160818
  Receipt Date: 20160818
  Transmission Date: 20161109
  Serious: Yes (Death, Other)
  Sender: FDA-Public Use
  Company Number: US-009507513-1608USA009515

PATIENT
  Age: 92 Year
  Sex: Female

DRUGS (4)
  1. NORTHERA [Suspect]
     Active Substance: DROXIDOPA
     Indication: HYPOTENSION
     Dosage: 200MG, 1 IN 1D
     Route: 048
     Dates: start: 20160707, end: 201607
  2. SINEMET [Suspect]
     Active Substance: CARBIDOPA\LEVODOPA
     Indication: PARKINSON^S DISEASE
     Route: 001
  3. NORTHERA [Suspect]
     Active Substance: DROXIDOPA
     Indication: PARKINSON^S DISEASE
     Dosage: 100MG, 2 IN 1D
     Route: 048
     Dates: start: 201607
  4. FLORINEF ACETATE [Suspect]
     Active Substance: FLUDROCORTISONE ACETATE
     Indication: PRODUCT USED FOR UNKNOWN INDICATION
     Dosage: UNK
     Dates: start: 201607

REACTIONS (6)
  - Feeding disorder [Recovered/Resolved]
  - Drug intolerance [Unknown]
  - Hypotension [Unknown]
  - Parkinson^s disease [Fatal]
  - Product use issue [Unknown]
  - Mental status changes [Unknown]

NARRATIVE: CASE EVENT DATE: 201607
